FAERS Safety Report 26045008 (Version 1)
Quarter: 2025Q4

REPORT INFORMATION
  Report Type: Spontaneous
  Country: SG (occurrence: SG)
  Receive Date: 20251114
  Receipt Date: 20251114
  Transmission Date: 20260117
  Serious: Yes (Hospitalization, Other)
  Sender: UNICHEM
  Company Number: SG-UNICHEM LABORATORIES LIMITED-UNI-2025-SG-003710

PATIENT

DRUGS (1)
  1. CARBAMAZEPINE [Suspect]
     Active Substance: CARBAMAZEPINE
     Indication: Trigeminal neuralgia
     Dosage: 400 MILLIGRAM, BID
     Route: 065

REACTIONS (3)
  - Ophthalmoplegia [Recovered/Resolved]
  - Toxicity to various agents [Unknown]
  - Balance disorder [Unknown]
